FAERS Safety Report 4340261-0 (Version None)
Quarter: 2004Q2

REPORT INFORMATION
  Report Type: 
  Country: None (occurrence: None)
  Receive Date: 20040414
  Receipt Date: 20040331
  Transmission Date: 20050107
  Serious: Yes (Death)
  Sender: FDA-Public Use
  Company Number: S04-USA-01686-01

PATIENT
  Age: 40 Year
  Sex: Male

DRUGS (4)
  1. LEXAPRO [Suspect]
     Indication: DEPRESSION
     Dosage: 10 MG QD PO
     Route: 048
     Dates: start: 20040221, end: 20040321
  2. ATIVAN [Concomitant]
  3. INSULIN [Concomitant]
  4. PROZAC [Concomitant]

REACTIONS (5)
  - COMPLETED SUICIDE [None]
  - FEELING ABNORMAL [None]
  - HYPERHIDROSIS [None]
  - INJURY ASPHYXIATION [None]
  - INSOMNIA [None]
